FAERS Safety Report 14415391 (Version 5)
Quarter: 2018Q3

REPORT INFORMATION
  Report Type: Report from Study
  Country: AR (occurrence: AR)
  Receive Date: 20180121
  Receipt Date: 20180924
  Transmission Date: 20181010
  Serious: Yes (Other)
  Sender: FDA-Public Use
  Company Number: PHHY2018AR006862

PATIENT
  Sex: Male

DRUGS (4)
  1. ENTRESTO [Suspect]
     Active Substance: SACUBITRIL\VALSARTAN
     Dosage: 50 MG (24 MG SACUBITRIL, 26 MG VALSARTAN), BID
     Route: 065
     Dates: start: 201704, end: 2017
  2. ENTRESTO [Suspect]
     Active Substance: SACUBITRIL\VALSARTAN
     Dosage: 100 MG (49 MG SACUBITRIL, 51 MG VALSARTAN), HALF TABLET Q12H
     Route: 065
     Dates: end: 2018
  3. ENTRESTO [Suspect]
     Active Substance: SACUBITRIL\VALSARTAN
     Dosage: 50 MG (24 MG SACUBITRIL, 26 MG VALSARTAN), BID
     Route: 065
     Dates: start: 201801
  4. ENTRESTO [Suspect]
     Active Substance: SACUBITRIL\VALSARTAN
     Indication: CARDIAC FAILURE CHRONIC
     Dosage: 0.5 DF (100 MG), QD
     Route: 065
     Dates: start: 2015

REACTIONS (6)
  - Tremor [Recovering/Resolving]
  - Wrong technique in product usage process [Not Recovered/Not Resolved]
  - Pain in extremity [Recovering/Resolving]
  - Abdominal discomfort [Unknown]
  - Cardiac disorder [Recovering/Resolving]
  - Lacrimation increased [Recovering/Resolving]
